FAERS Safety Report 8662880 (Version 2)
Quarter: 2012Q4

REPORT INFORMATION
  Report Type: 
  Country: CA (occurrence: CA)
  Receive Date: 20120712
  Receipt Date: 20121212
  Transmission Date: 20130627
  Serious: Yes (Hospitalization)
  Sender: FDA-Public Use
  Company Number: CA-SANOFI-AVENTIS-2012SA048212

PATIENT
  Age: 62 Year
  Sex: Female

DRUGS (10)
  1. TAXOTERE [Suspect]
     Indication: BREAST CANCER METASTATIC
     Dosage: duration - 3 doses
     Route: 042
     Dates: start: 19970128, end: 19970318
  2. ACETAMINOPHEN [Concomitant]
     Route: 048
  3. AMILORIDE/HYDROCHLOROTHIAZIDE [Concomitant]
     Route: 048
  4. CIPROFLOXACIN [Concomitant]
     Route: 048
  5. FENTANYL [Concomitant]
     Dosage: every 72 hour
  6. HYDROCHLOROTHIAZIDE [Concomitant]
     Route: 048
  7. METOLAZONE [Concomitant]
     Dosage: frequency: 2 every 2days
     Route: 048
  8. NYSTATIN [Concomitant]
     Dosage: frequency as reported: qbh Dose:50000 unit(s)
     Route: 048
  9. POTASSIUM CHLORIDE [Concomitant]
     Route: 048
  10. RANITIDINE [Concomitant]
     Route: 048

REACTIONS (4)
  - Alveolitis [Unknown]
  - Pleural effusion [Unknown]
  - Pneumonitis [Unknown]
  - Pulmonary oedema [Unknown]
